FAERS Safety Report 4316283-2 (Version None)
Quarter: 2004Q1

REPORT INFORMATION
  Report Type: 
  Country: None (occurrence: None)
  Receive Date: 20040310
  Receipt Date: 20030715
  Transmission Date: 20041129
  Serious: Yes (Other)
  Sender: FDA-Public Use
  Company Number: HQWYE177213MAY03

PATIENT
  Age: 63 Year
  Sex: Male

DRUGS (3)
  1. PROTONIX [Suspect]
     Dosage: 40 MG 1 X PER 1 DAY ORAL
     Route: 048
     Dates: start: 20010211, end: 20030507
  2. DILANTIN [Suspect]
     Dosage: 500 MG 1X PER 1 DAY, ORAL
     Route: 048
  3. NASACORT [Concomitant]

REACTIONS (2)
  - ACCIDENTAL OVERDOSE [None]
  - MEDICATION ERROR [None]
